FAERS Safety Report 17043491 (Version 1)
Quarter: 2019Q4

REPORT INFORMATION
  Report Type: Spontaneous
  Country: US (occurrence: US)
  Receive Date: 20191118
  Receipt Date: 20191118
  Transmission Date: 20200122
  Serious: No
  Sender: FDA-Public Use
  Company Number: US-THERAPEUTICSMD-2019TMD02971

PATIENT
  Sex: Female

DRUGS (1)
  1. BIJUVA [Suspect]
     Active Substance: ESTRADIOL\PROGESTERONE
     Route: 048

REACTIONS (2)
  - Choking [Recovered/Resolved]
  - Product use complaint [Not Recovered/Not Resolved]
